FAERS Safety Report 8677286 (Version 2)
Quarter: 2012Q4

REPORT INFORMATION
  Report Type: Report from Study
  Country: JP (occurrence: JP)
  Receive Date: 20120723
  Receipt Date: 20121022
  Transmission Date: 20130627
  Serious: Yes (Other)
  Sender: FDA-Public Use
  Company Number: JP-ASTELLAS-2011JP001164

PATIENT
  Age: 38 Year
  Sex: Female
  Weight: 40.3 kg

DRUGS (27)
  1. TACROLIMUS CAPSULES [Suspect]
     Indication: LUPUS NEPHRITIS
     Dosage: 2 mg, Unknown/D
     Route: 048
     Dates: start: 20081126
  2. TACROLIMUS CAPSULES [Suspect]
     Dosage: 3 mg, Unknown/D
     Route: 048
     Dates: start: 20080723, end: 20081125
  3. PREDNISOLONE [Concomitant]
     Indication: LUPUS NEPHRITIS
     Dosage: 40 mg, Unknown/D
     Route: 048
     Dates: end: 20080703
  4. PREDNISOLONE [Concomitant]
     Dosage: 35 mg, Unknown/D
     Route: 048
     Dates: start: 20080704, end: 20080723
  5. PREDNISOLONE [Concomitant]
     Dosage: 30 mg, Unknown/D
     Route: 048
     Dates: start: 20080724, end: 20080820
  6. PREDNISOLONE [Concomitant]
     Dosage: 30 mg, Unknown/D
     Route: 048
     Dates: start: 20080821, end: 20080919
  7. PREDNISOLONE [Concomitant]
     Dosage: 25 mg, Unknown/D
     Route: 048
     Dates: start: 20080920, end: 20081126
  8. PREDNISOLONE [Concomitant]
     Dosage: 20 mg, Unknown/D
     Route: 048
     Dates: start: 20081127, end: 20090313
  9. PREDNISOLONE [Concomitant]
     Dosage: 20 mg, Unknown/D
     Route: 048
     Dates: start: 20090314, end: 20090730
  10. PREDNISOLONE [Concomitant]
     Dosage: 20 mg, Unknown/D
     Route: 048
     Dates: start: 20090731, end: 20091015
  11. PREDNISOLONE [Concomitant]
     Dosage: 15 mg, Unknown/D
     Route: 048
     Dates: start: 20091016, end: 20091224
  12. PREDNISOLONE [Concomitant]
     Dosage: 10 mg, Unknown/D
     Route: 048
     Dates: start: 20091225
  13. BAYASPIRIN [Concomitant]
     Indication: PROPHYLAXIS
     Dosage: 100 mg, Unknown/D
     Route: 048
  14. HEAVY MAGNESIUM OXIDE [Concomitant]
     Indication: CONSTIPATION
     Dosage: 2000 mg, Unknown/D
     Route: 048
  15. BAKTAR [Concomitant]
     Indication: PROPHYLAXIS
     Dosage: 1 DF, Unknown/D
     Route: 048
  16. FERROMIA [Concomitant]
     Indication: IRON DEFICIENCY ANAEMIA
     Dosage: 100 mg, Unknown/D
     Route: 048
  17. TAKEPRON [Concomitant]
     Indication: PROPHYLAXIS
     Dosage: 30 mg, Unknown/D
     Route: 048
  18. LENDORMIN [Concomitant]
     Indication: INSOMNIA
     Dosage: 0.25 mg, Unknown/D
     Route: 048
  19. ALFAROL [Concomitant]
     Indication: PROPHYLAXIS
     Dosage: 0.25 ug, Unknown/D
     Route: 048
  20. BENET [Concomitant]
     Indication: PROPHYLAXIS
     Dosage: 17.5 mg, Weekly
     Route: 048
  21. MEILAX [Concomitant]
     Indication: INSOMNIA
     Dosage: 1 mg, Unknown/D
     Route: 048
     Dates: end: 20090522
  22. MEILAX [Concomitant]
     Dosage: 2 mg, Unknown/D
     Route: 048
     Dates: start: 20090523
  23. PL GRAN. [Concomitant]
     Indication: NASOPHARYNGITIS
     Dosage: 1 g, tid
     Route: 048
  24. PL GRAN. [Concomitant]
     Indication: PHARYNGITIS
  25. ABILIFY [Concomitant]
     Route: 048
  26. ALOSENN                            /00476901/ [Concomitant]
     Indication: CONSTIPATION
     Dosage: 0.5 g, Unknown/D
     Route: 048
     Dates: start: 20090522, end: 20100520
  27. MYSLEE [Concomitant]
     Indication: INSOMNIA
     Dosage: 10 mg, Unknown/D
     Route: 048
     Dates: start: 20091016

REACTIONS (8)
  - Intentional drug misuse [Unknown]
  - Schizophrenia [Not Recovered/Not Resolved]
  - Hypoaesthesia [Recovering/Resolving]
  - Eczema [Recovering/Resolving]
  - Pharyngitis [Recovering/Resolving]
  - Nasopharyngitis [Recovering/Resolving]
  - Depression [Not Recovered/Not Resolved]
  - Pain [Recovering/Resolving]
